FAERS Safety Report 5494011-5 (Version None)
Quarter: 2007Q4

REPORT INFORMATION
  Report Type: 
  Country: None (occurrence: None)
  Receive Date: 20071023
  Receipt Date: 20071012
  Transmission Date: 20080405
  Serious: Yes (Other)
  Sender: FDA-Public Use
  Company Number: PL-PFIZER INC-2007078851

PATIENT
  Sex: Male
  Weight: 84 kg

DRUGS (7)
  1. XALATAN [Suspect]
     Route: 031
     Dates: start: 20070806, end: 20070812
  2. TRUSOPT [Concomitant]
  3. BETA BLOCKING AGENTS [Concomitant]
  4. BENICAR [Concomitant]
  5. CONCOR [Concomitant]
  6. SIMVACARD [Concomitant]
  7. EUTHYROX [Concomitant]

REACTIONS (1)
  - HALLUCINATION, VISUAL [None]
